FAERS Safety Report 4387863-3 (Version None)
Quarter: 2004Q2

REPORT INFORMATION
  Report Type: 
  Country: None (occurrence: None)
  Receive Date: 20040630
  Receipt Date: 20040616
  Transmission Date: 20050107
  Serious: Yes (Hospitalization)
  Sender: FDA-Public Use
  Company Number: GB-BRISTOL-MYERS SQUIBB COMPANY-12628624

PATIENT
  Age: 59 Year
  Sex: Female
  Weight: 77 kg

DRUGS (5)
  1. CYCLOPHOSPHAMIDE [Suspect]
     Indication: BREAST CANCER
     Route: 040
     Dates: start: 20040423, end: 20040423
  2. METHOTREXATE [Suspect]
     Indication: BREAST CANCER
     Route: 040
     Dates: start: 20040423, end: 20040423
  3. EPIRUBICIN [Suspect]
     Indication: BREAST CANCER
     Route: 040
     Dates: start: 20040218, end: 20040218
  4. FLUOROURACIL [Suspect]
     Indication: BREAST CANCER
     Route: 040
     Dates: start: 20040423, end: 20040423
  5. VERAPAMIL [Concomitant]

REACTIONS (2)
  - LEUKOPENIA [None]
  - NEUTROPENIC SEPSIS [None]
